FAERS Safety Report 6995322 (Version 3)
Quarter: 2013Q1

REPORT INFORMATION
  Report Type: Report from Study
  Country: RU (occurrence: RU)
  Receive Date: 20090515
  Receipt Date: 20130109
  Transmission Date: 20140127
  Serious: Yes (Death)
  Sender: FDA-Public Use
  Company Number: RU-ROCHE-632619

PATIENT
  Age: 27 Year
  Sex: Female

DRUGS (3)
  1. TRASTUZUMAB [Suspect]
     Indication: BREAST CANCER
     Route: 042
  2. CAPECITABINE [Suspect]
     Indication: BREAST CANCER
     Route: 048
  3. PACLITAXEL [Suspect]
     Indication: BREAST CANCER
     Route: 065
     Dates: start: 200901, end: 200903

REACTIONS (2)
  - Acute pulmonary oedema [Fatal]
  - Metastases to lung [Fatal]
